FAERS Safety Report 14297797 (Version 1)
Quarter: 2017Q4

REPORT INFORMATION
  Report Type: Spontaneous
  Country: US (occurrence: US)
  Receive Date: 20171218
  Receipt Date: 20171218
  Transmission Date: 20180321
  Serious: Yes (Death)
  Sender: FDA-Public Use
  Company Number: US-ASTELLAS-2017US054025

PATIENT
  Age: 41 Year
  Sex: Male

DRUGS (1)
  1. PROGRAF [Suspect]
     Active Substance: TACROLIMUS\TACROLIMUS ANHYDROUS
     Indication: RENAL TRANSPLANT
     Dosage: 3 CAPSULES IN THE MORNING AND 4 IN NIGHT, ONCE DAILY
     Route: 048
     Dates: start: 20120316, end: 20170922

REACTIONS (1)
  - Death [Fatal]

NARRATIVE: CASE EVENT DATE: 20170922
